FAERS Safety Report 7351843 (Version 6)
Quarter: 2015Q1

REPORT INFORMATION
  Report Type: Spontaneous
  Country: US (occurrence: US)
  Receive Date: 20100412
  Receipt Date: 20150223
  Transmission Date: 20150721
  Serious: Yes (Hospitalization, Other)
  Sender: FDA-Public Use
  Company Number: US-JNJFOC-20091204761

PATIENT
  Age: 73 Year
  Sex: Female

DRUGS (4)
  1. LEVAQUIN [Suspect]
     Active Substance: LEVOFLOXACIN
     Indication: VIRAL INFECTION
     Route: 048
     Dates: start: 199901, end: 200710
  2. PREDNISONE. [Suspect]
     Active Substance: PREDNISONE
     Indication: BRONCHITIS
     Route: 048
  3. LEVAQUIN [Suspect]
     Active Substance: LEVOFLOXACIN
     Indication: BRONCHITIS
     Route: 048
     Dates: start: 199901, end: 200710
  4. LEVAQUIN [Suspect]
     Active Substance: LEVOFLOXACIN
     Indication: RESPIRATORY DISORDER
     Route: 048
     Dates: start: 199901, end: 200710

REACTIONS (5)
  - Tendon rupture [Unknown]
  - Carpal tunnel syndrome [Unknown]
  - Rotator cuff syndrome [Recovering/Resolving]
  - Tendonitis [Unknown]
  - Tendonitis [Unknown]

NARRATIVE: CASE EVENT DATE: 200803
